FAERS Safety Report 16876564 (Version 1)
Quarter: 2019Q4

REPORT INFORMATION
  Report Type: Spontaneous
  Country: DE (occurrence: DE)
  Receive Date: 20191002
  Receipt Date: 20191002
  Transmission Date: 20200122
  Serious: Yes (Other)
  Sender: FDA-Public Use
  Company Number: DE-TEVA-2019-DE-1116117

PATIENT
  Age: 53 Year
  Sex: Female

DRUGS (1)
  1. FOLSAEURE ABZ 5MG TABLETTEN [Suspect]
     Active Substance: FOLIC ACID
     Route: 065

REACTIONS (2)
  - Urticaria [Not Recovered/Not Resolved]
  - Type I hypersensitivity [Not Recovered/Not Resolved]

NARRATIVE: CASE EVENT DATE: 2019
